FAERS Safety Report 25046858 (Version 2)
Quarter: 2025Q3

REPORT INFORMATION
  Report Type: Report from Study
  Country: US (occurrence: US)
  Receive Date: 20250306
  Receipt Date: 20250810
  Transmission Date: 20251021
  Serious: Yes (Other)
  Sender: ALEXION PHARMACEUTICALS
  Company Number: US-AstraZeneca-CH-00818433A

PATIENT
  Age: 56 Year
  Sex: Female

DRUGS (1)
  1. OLAPARIB [Suspect]
     Active Substance: OLAPARIB
     Indication: Breast cancer female
     Dates: start: 20250215

REACTIONS (2)
  - Mobility decreased [Unknown]
  - Back disorder [Unknown]

NARRATIVE: CASE EVENT DATE: 20250227
